FAERS Safety Report 4371277-6 (Version None)
Quarter: 2004Q2

REPORT INFORMATION
  Report Type: 
  Country: None (occurrence: None)
  Receive Date: 20040603
  Receipt Date: 20040520
  Transmission Date: 20050107
  Serious: Yes (Hospitalization)
  Sender: FDA-Public Use
  Company Number: 2004214406US

PATIENT
  Age: 39 Year
  Sex: Female

DRUGS (6)
  1. CELEBREX [Suspect]
     Indication: ARTHROPATHY
     Dosage: 100 MG, BID
     Dates: start: 20040330, end: 20040401
  2. ESTROTEST (ESTRADIOL UNDECYLATE, TESTOSTERONE PHENYLPROPIONATE, BENZYL [Concomitant]
  3. MIGRIN [Concomitant]
  4. FLEXERIL [Concomitant]
  5. NASACORT [Concomitant]
  6. BIAXIN [Concomitant]

REACTIONS (17)
  - ABDOMINAL PAIN UPPER [None]
  - CHEST PAIN [None]
  - DIZZINESS [None]
  - DYSPNOEA [None]
  - EYE MOVEMENT DISORDER [None]
  - EYE PAIN [None]
  - FATIGUE [None]
  - FEELING HOT [None]
  - HEADACHE [None]
  - HYPOAESTHESIA [None]
  - MEMORY IMPAIRMENT [None]
  - MOOD SWINGS [None]
  - MUSCLE TWITCHING [None]
  - PAIN IN EXTREMITY [None]
  - SOMNOLENCE [None]
  - SUICIDAL IDEATION [None]
  - SWELLING FACE [None]
